FAERS Safety Report 7448085-2 (Version None)
Quarter: 2011Q2

REPORT INFORMATION
  Report Type: 
  Country: None (occurrence: None)
  Receive Date: 20110429
  Receipt Date: 20100326
  Transmission Date: 20111010
  Serious: No
  Sender: FDA-Public Use
  Company Number: US-ASTRAZENECA-2009SE24067

PATIENT
  Sex: Female
  Weight: 47.2 kg

DRUGS (8)
  1. PIROXICAM [Concomitant]
  2. NEXIUM [Suspect]
     Route: 048
  3. NEURONTIN [Concomitant]
  4. HYDROCODONE BITARTRATE [Concomitant]
  5. EXCEDRIN BACK AND BODY [Concomitant]
  6. NEXIUM [Suspect]
     Indication: GASTROOESOPHAGEAL REFLUX DISEASE
     Route: 048
  7. SKELAXIN [Concomitant]
  8. GLUCOSAMINE [Concomitant]

REACTIONS (5)
  - GASTROOESOPHAGEAL REFLUX DISEASE [None]
  - DRUG DOSE OMISSION [None]
  - DYSGEUSIA [None]
  - DYSPEPSIA [None]
  - INAPPROPRIATE SCHEDULE OF DRUG ADMINISTRATION [None]
